FAERS Safety Report 8625436-4 (Version None)
Quarter: 2012Q3

REPORT INFORMATION
  Report Type: 
  Country: None (occurrence: None)
  Receive Date: 20120827
  Receipt Date: 20120817
  Transmission Date: 20120928
  Serious: Yes (Death, Hospitalization)
  Sender: FDA-Public Use
  Company Number: US-ACTELION-A-US2012-67978

PATIENT
  Age: 71 Year
  Sex: Female

DRUGS (6)
  1. TRACLEER [Concomitant]
     Indication: PULMONARY ARTERIAL HYPERTENSION
     Dosage: UNK
     Route: 048
  2. ADCIRCA [Concomitant]
  3. LASIX [Concomitant]
  4. EPOPROSTENOL SODIUM [Suspect]
     Dosage: 7 NG/KG, PER MIN
     Route: 042
     Dates: start: 20120604
  5. EPOPROSTENOL SODIUM [Suspect]
     Indication: PULMONARY ARTERIAL HYPERTENSION
     Dosage: 10 NG/KG, PER MIN
     Route: 042
  6. EPOPROSTENOL SODIUM [Suspect]
     Dosage: 8 NG/KG, PER MIN
     Route: 042
     Dates: start: 20120524

REACTIONS (11)
  - URINARY TRACT INFECTION [None]
  - MALAISE [None]
  - OEDEMA PERIPHERAL [None]
  - DEATH [None]
  - TRANSIENT ISCHAEMIC ATTACK [None]
  - URINARY RETENTION [None]
  - NAUSEA [None]
  - DYSPNOEA [None]
  - CANDIDIASIS [None]
  - OXYGEN SATURATION DECREASED [None]
  - FAECAL INCONTINENCE [None]
